FAERS Safety Report 5820272-6 (Version None)
Quarter: 2008Q3

REPORT INFORMATION
  Report Type: 
  Country: None (occurrence: None)
  Receive Date: 20080724
  Receipt Date: 20070529
  Transmission Date: 20090109
  Serious: No
  Sender: FDA-Public Use
  Company Number: A0653175A

PATIENT
  Age: 70 Year
  Sex: Female

DRUGS (5)
  1. AVANDIA [Suspect]
     Dosage: 4MG PER DAY
     Route: 048
  2. ALTACE [Concomitant]
  3. METFORMIN [Concomitant]
  4. ZETIA [Concomitant]
  5. LIPITOR [Concomitant]

REACTIONS (2)
  - CHEST PAIN [None]
  - RASH [None]
